FAERS Safety Report 8803945 (Version 1)
Quarter: 2012Q4

REPORT INFORMATION
  Report Type: 
  Country: US (occurrence: US)
  Receive Date: 20120924
  Receipt Date: 20120924
  Transmission Date: 20130627
  Serious: Yes (Other)
  Sender: FDA-Public Use
  Company Number: US-PFIZER INC-2012233774

PATIENT
  Age: 10 Year
  Sex: Female
  Weight: 22 kg

DRUGS (2)
  1. SOLU-MEDROL [Suspect]
     Indication: ASTHMA
     Dosage: UNK
     Dates: start: 20120916
  2. SOLU-MEDROL [Suspect]
     Dosage: 20 mg, every 12 hours

REACTIONS (1)
  - Anaphylactic reaction [Recovering/Resolving]
